FAERS Safety Report 20405317 (Version 1)
Quarter: 2022Q1

REPORT INFORMATION
  Report Type: Spontaneous
  Country: AU (occurrence: AU)
  Receive Date: 20220131
  Receipt Date: 20220131
  Transmission Date: 20220424
  Serious: No
  Sender: FDA-Public Use
  Company Number: AU-PFIZER INC-2020373639

PATIENT
  Age: 6 Decade
  Sex: Female

DRUGS (2)
  1. SOMAVERT [Suspect]
     Active Substance: PEGVISOMANT
     Dosage: UNK (STRENGTH: 20 MG)
  2. SOMAVERT [Suspect]
     Active Substance: PEGVISOMANT
     Dosage: UNK (STRENGTH: 10 MG)

REACTIONS (4)
  - Injection site pain [Unknown]
  - Wrong technique in device usage process [Unknown]
  - Injection site injury [Unknown]
  - Contusion [Recovered/Resolved]
